FAERS Safety Report 4575977-4 (Version None)
Quarter: 2005Q1

REPORT INFORMATION
  Report Type: 
  Country: None (occurrence: None)
  Receive Date: 20050209
  Receipt Date: 20041129
  Transmission Date: 20050727
  Serious: Yes (Hospitalization)
  Sender: FDA-Public Use
  Company Number: JP-SOLVAY-00304004218

PATIENT
  Age: 25046 Day
  Sex: Female
  Weight: 40 kg

DRUGS (9)
  1. LUVOX [Suspect]
     Indication: OBSESSIVE-COMPULSIVE DISORDER
     Dosage: DAILY DOSE: 75 MILLIGRAM(S)
     Route: 048
     Dates: start: 20020417, end: 20040730
  2. PL GRANULE [Concomitant]
     Indication: NASOPHARYNGITIS
     Dosage: DAILY DOSE: 3 GRAM(S)
     Route: 048
     Dates: start: 20040720, end: 20040723
  3. CEFZONE [Concomitant]
     Indication: NASOPHARYNGITIS
     Dosage: DAILY DOSE: 300 MILLIGRAM(S)
     Route: 048
     Dates: start: 20040720, end: 20040723
  4. PAXIL [Interacting]
     Indication: OBSESSIVE-COMPULSIVE DISORDER
     Dosage: DAILY DOSE: 10 MILLIGRAM(S)
     Route: 048
     Dates: start: 20020129, end: 20020308
  5. PAXIL [Interacting]
     Dosage: DAILY DOSE: 20 MILLIGRAM(S)
     Route: 048
     Dates: start: 20020309, end: 20020328
  6. PAXIL [Interacting]
     Dosage: DAILY DOSE: 40 MILLIGRAM(S)
     Route: 048
     Dates: start: 20020329, end: 20030902
  7. PAXIL [Interacting]
     Dosage: DAILY DOSE: 20 MILLIGRAM(S)
     Route: 048
     Dates: start: 20030903, end: 20040706
  8. PAXIL [Interacting]
     Dosage: DAILY DOSE: 10 MILLIGRAM(S)
     Route: 048
     Dates: start: 20040707, end: 20040730
  9. RISPERIDONE [Interacting]
     Indication: OBSESSIVE-COMPULSIVE DISORDER
     Dosage: DAILY DOSE: 3 MILLIGRAM(S)
     Route: 048
     Dates: start: 20020101, end: 20040728

REACTIONS (17)
  - AGITATION [None]
  - ANAEMIA [None]
  - ANOREXIA [None]
  - ASPARTATE AMINOTRANSFERASE INCREASED [None]
  - BLOOD ALKALINE PHOSPHATASE DECREASED [None]
  - BLOOD CREATINE PHOSPHOKINASE INCREASED [None]
  - BLOOD LACTATE DEHYDROGENASE INCREASED [None]
  - CONVULSION [None]
  - DRUG INTERACTION [None]
  - FATIGUE [None]
  - HYPERREFLEXIA [None]
  - MEDICATION ERROR [None]
  - MENTAL STATUS CHANGES [None]
  - NASOPHARYNGITIS [None]
  - SEROTONIN SYNDROME [None]
  - SOMNOLENCE [None]
  - TREMOR [None]
